FAERS Safety Report 6912261-5 (Version None)
Quarter: 2010Q3

REPORT INFORMATION
  Report Type: 
  Country: None (occurrence: None)
  Receive Date: 20100806
  Receipt Date: 20100730
  Transmission Date: 20110219
  Serious: No
  Sender: FDA-Public Use
  Company Number: B0614843A

PATIENT
  Sex: Female
  Weight: 45 kg

DRUGS (6)
  1. RELENZA [Suspect]
     Indication: INFLUENZA
     Dosage: 20MG PER DAY
     Route: 055
     Dates: start: 20091209, end: 20091213
  2. CALONAL [Concomitant]
     Indication: HEADACHE
     Route: 048
     Dates: start: 20091209
  3. FERRUM [Concomitant]
     Dosage: 1IUAX PER DAY
     Route: 048
     Dates: start: 20100109, end: 20100510
  4. IRSOGLADINE MALEATE [Concomitant]
     Dosage: 1IUAX PER DAY
     Route: 048
     Dates: start: 20100109, end: 20100510
  5. PASETOCIN [Concomitant]
     Dosage: 3IUAX PER DAY
     Route: 048
     Dates: start: 20100329, end: 20100412
  6. CEFAMEZIN [Concomitant]
     Dosage: 2G PER DAY
     Route: 042
     Dates: start: 20100509, end: 20100509

REACTIONS (2)
  - DRUG EXPOSURE DURING PREGNANCY [None]
  - PREGNANCY [None]
